FAERS Safety Report 12867500 (Version 3)
Quarter: 2016Q4

REPORT INFORMATION
  Report Type: Spontaneous
  Country: US (occurrence: US)
  Receive Date: 20161020
  Receipt Date: 20161229
  Transmission Date: 20170207
  Serious: No
  Sender: FDA-Public Use
  Company Number: US-MYLANLABS-2016M1038707

PATIENT
  Sex: Male

DRUGS (2)
  1. THIORIDAZINE HYDROCHLORIDE TABLETS, USP [Suspect]
     Active Substance: THIORIDAZINE HYDROCHLORIDE
     Route: 048
  2. AMANTADINE [Concomitant]
     Active Substance: AMANTADINE

REACTIONS (1)
  - Heart rate increased [Not Recovered/Not Resolved]
